FAERS Safety Report 19009179 (Version 1)
Quarter: 2021Q1

REPORT INFORMATION
  Report Type: Spontaneous
  Country: CA (occurrence: CA)
  Receive Date: 20210316
  Receipt Date: 20210316
  Transmission Date: 20210420
  Serious: Yes (Death)
  Sender: FDA-Public Use
  Company Number: CA-ROCHE-2781737

PATIENT
  Sex: Female

DRUGS (1)
  1. CAPECITABINE. [Suspect]
     Active Substance: CAPECITABINE
     Indication: PRODUCT USED FOR UNKNOWN INDICATION
     Route: 048

REACTIONS (8)
  - Diarrhoea [Fatal]
  - Diarrhoea haemorrhagic [Fatal]
  - Cardiac arrest [Fatal]
  - Neutropenia [Fatal]
  - Colitis [Fatal]
  - Haemodynamic instability [Fatal]
  - Electrolyte imbalance [Fatal]
  - Pollakiuria [Fatal]
